FAERS Safety Report 8041846-0 (Version None)
Quarter: 2012Q1

REPORT INFORMATION
  Report Type: 
  Country: None (occurrence: None)
  Receive Date: 20120112
  Receipt Date: 20120106
  Transmission Date: 20120608
  Serious: No
  Sender: FDA-Public Use
  Company Number: US-B.I. PHARMACEUTICALS,INC./RIDGEFIELD-2012-BP-00314BP

PATIENT
  Sex: Male

DRUGS (7)
  1. PRAMIPEXOLE DIHYCHLLORIDE [Concomitant]
     Indication: BURNING SENSATION
     Dosage: 0.25 MG
     Route: 048
  2. PROPRANOLOL [Concomitant]
     Indication: HYPERTENSION
     Dosage: 60 MG
     Route: 048
  3. SPIRIVA [Suspect]
     Indication: BRONCHITIS CHRONIC
     Dosage: 18 MCG
     Route: 055
     Dates: start: 20110501
  4. CYMBALTA [Concomitant]
     Indication: DEPRESSION
     Dosage: 60 MG
     Route: 048
  5. CYMBALTA [Concomitant]
     Indication: PAIN
  6. JALYN [Concomitant]
     Indication: URINARY TRACT DISORDER
     Dosage: 0.5 MG
     Route: 048
  7. MELATONIN [Concomitant]
     Indication: SLEEP DISORDER

REACTIONS (4)
  - DRY MOUTH [None]
  - TONGUE DISORDER [None]
  - DYSGEUSIA [None]
  - SWOLLEN TONGUE [None]
